FAERS Safety Report 9455290 (Version 1)
Quarter: 2013Q3

REPORT INFORMATION
  Report Type: Spontaneous
  Country: IN (occurrence: IN)
  Receive Date: 20130813
  Receipt Date: 20130813
  Transmission Date: 20140515
  Serious: Yes (Other)
  Sender: FDA-Public Use
  Company Number: IN-RANBAXY-2013R1-72157

PATIENT
  Sex: Male

DRUGS (1)
  1. PHEXIN BD [Suspect]
     Indication: PRODUCT USED FOR UNKNOWN INDICATION
     Dosage: 1 DF, BID
     Route: 065
     Dates: start: 201307, end: 201307

REACTIONS (1)
  - Haematemesis [Recovered/Resolved]
